FAERS Safety Report 6277672-2 (Version None)
Quarter: 2009Q3

REPORT INFORMATION
  Report Type: 
  Country: None (occurrence: None)
  Receive Date: 20090717
  Receipt Date: 20090717
  Transmission Date: 20100115
  Serious: Yes (Hospitalization)
  Sender: FDA-Public Use
  Company Number: None

PATIENT
  Age: 62 Year
  Sex: Male
  Weight: 83 kg

DRUGS (12)
  1. WARFARIN SODIUM [Suspect]
     Indication: DEEP VEIN THROMBOSIS
     Dosage: 5 DAILY ORAL; 500 MG TID ORAL
     Route: 048
     Dates: start: 20090702, end: 20090710
  2. WARFARIN SODIUM [Suspect]
     Indication: POUCHITIS
     Dosage: 5 DAILY ORAL; 500 MG TID ORAL
     Route: 048
     Dates: start: 20090702, end: 20090710
  3. WARFARIN SODIUM [Suspect]
     Indication: DEEP VEIN THROMBOSIS
     Dosage: 5 DAILY ORAL; 500 MG TID ORAL
     Route: 048
     Dates: start: 20090630
  4. WARFARIN SODIUM [Suspect]
     Indication: POUCHITIS
     Dosage: 5 DAILY ORAL; 500 MG TID ORAL
     Route: 048
     Dates: start: 20090630
  5. ASPIRIN [Concomitant]
  6. PREDNISONE TAB [Concomitant]
  7. LASIX [Concomitant]
  8. MESTINON [Concomitant]
  9. COZAAR [Concomitant]
  10. TEGRETOL [Concomitant]
  11. SPRINOLACTONE [Concomitant]
  12. PERCOCENT [Concomitant]

REACTIONS (2)
  - INTERNATIONAL NORMALISED RATIO INCREASED [None]
  - POUCHITIS [None]
